FAERS Safety Report 21550044 (Version 1)
Quarter: 2022Q4

REPORT INFORMATION
  Report Type: Spontaneous
  Country: KR (occurrence: KR)
  Receive Date: 20221103
  Receipt Date: 20221103
  Transmission Date: 20230112
  Serious: Yes (Other)
  Sender: FDA-Public Use
  Company Number: KR-MYLANLABS-2022M1118824

PATIENT
  Age: 76 Year

DRUGS (5)
  1. LYRICA [Suspect]
     Active Substance: PREGABALIN
     Indication: Gait disturbance
     Dosage: 1 DOSAGE FORM, QD
     Route: 065
     Dates: start: 20200901, end: 20200908
  2. LANSOPRAZOLE [Concomitant]
     Active Substance: LANSOPRAZOLE
     Indication: Gait disturbance
     Dosage: 1 DOSAGE FORM, QD
     Route: 065
     Dates: start: 20200901
  3. DULOXETINE HYDROCHLORIDE [Concomitant]
     Active Substance: DULOXETINE HYDROCHLORIDE
     Indication: Gait disturbance
     Dosage: 1 DOSAGE FORM, QD
     Route: 065
     Dates: start: 20200714
  4. TRAMADOL HYDROCHLORIDE AND ACETAMINOPHEN [Concomitant]
     Active Substance: ACETAMINOPHEN\TRAMADOL HYDROCHLORIDE
     Indication: Gait disturbance
     Dosage: 1 DOSAGE FORM, QD
     Route: 065
     Dates: start: 20200714
  5. ACECLOFENAC [Concomitant]
     Active Substance: ACECLOFENAC
     Indication: Gait disturbance
     Dosage: 1 DOSAGE FORM, QD
     Route: 065
     Dates: start: 20200714

REACTIONS (3)
  - Myoclonus [Recovering/Resolving]
  - Facial spasm [Recovering/Resolving]
  - Off label use [Unknown]

NARRATIVE: CASE EVENT DATE: 20200901
